FAERS Safety Report 8078413-9 (Version None)
Quarter: 2012Q1

REPORT INFORMATION
  Report Type: 
  Country: None (occurrence: None)
  Receive Date: 20120127
  Receipt Date: 20110117
  Transmission Date: 20120608
  Serious: No
  Sender: FDA-Public Use
  Company Number: US-ABBOTT-10P-163-0664740-00

PATIENT
  Age: 60 Year
  Sex: Female

DRUGS (8)
  1. CALCIUM W/D [Concomitant]
     Indication: PRODUCT USED FOR UNKNOWN INDICATION
  2. LUTEIN [Concomitant]
     Indication: MACULAR DEGENERATION
  3. DAYPRO [Concomitant]
     Indication: ANTIINFLAMMATORY THERAPY
  4. METHOTREXATE [Concomitant]
     Indication: RHEUMATOID ARTHRITIS
  5. MULTI-VITAMIN [Concomitant]
     Indication: PRODUCT USED FOR UNKNOWN INDICATION
  6. GLUCOSAMINE SUPPLEMENT [Concomitant]
     Indication: PRODUCT USED FOR UNKNOWN INDICATION
  7. LUTEIN [Concomitant]
     Indication: PROPHYLAXIS
  8. HUMIRA [Suspect]
     Indication: RHEUMATOID ARTHRITIS
     Dates: start: 20100813

REACTIONS (5)
  - INJECTION SITE PRURITUS [None]
  - INJECTION SITE HAEMATOMA [None]
  - INJECTION SITE PAIN [None]
  - INJECTION SITE REACTION [None]
  - INJECTION SITE DISCOLOURATION [None]
